FAERS Safety Report 6448344-6 (Version None)
Quarter: 2009Q4

REPORT INFORMATION
  Report Type: 
  Country: None (occurrence: None)
  Receive Date: 20091120
  Receipt Date: 20091117
  Transmission Date: 20100525
  Serious: Yes (Death)
  Sender: FDA-Public Use
  Company Number: PHEH2009US05798

PATIENT
  Sex: Male
  Weight: 70.295 kg

DRUGS (24)
  1. EXJADE [Suspect]
     Indication: LYMPHOPROLIFERATIVE DISORDER
     Dosage: 1000 MG, DAILY
     Route: 048
     Dates: start: 20081217
  2. AVODART [Concomitant]
     Dosage: 0.5 MG, QD
  3. BABY ASPIRIN [Concomitant]
     Dosage: 81 MG, QD
  4. BONIVA [Concomitant]
     Dosage: 150 MG, QMO
  5. CRESTOR [Concomitant]
     Dosage: 5 MG, QD
  6. DIGOXIN [Concomitant]
     Dosage: 125 MCG QD
  7. DUONEB [Concomitant]
  8. FLOMAX [Concomitant]
     Dosage: 0.4 MG CAPSULE  QD
  9. FOLIC ACID [Concomitant]
     Dosage: UNK
  10. HUMALOG [Concomitant]
     Dosage: 40 U, QD
  11. MIDODRINE HYDROCHLORIDE [Concomitant]
     Dosage: 2.5 MG, QD
  12. MUCINEX [Concomitant]
     Dosage: 1200-60 MG  TAB BID
  13. NEXIUM [Concomitant]
     Dosage: 40 MG, QD
  14. NITROGLYCERIN [Concomitant]
     Dosage: 0.3 MG, QD
  15. NOVOLIN [Concomitant]
     Dosage: 100 U, SLIDING SCALE
  16. PLAVIX [Concomitant]
     Dosage: 75 MG, QD
  17. PREDNISONE [Concomitant]
     Dosage: 5 MG, QD
  18. PULMICORT [Concomitant]
     Dosage: 5 ML, BID
  19. REVLIMID [Concomitant]
     Dosage: 5 MG, QD
  20. SENOKOT                                 /UNK/ [Concomitant]
     Dosage: 50 MG, QD
  21. SPIRIVA [Concomitant]
  22. XANAX [Concomitant]
     Dosage: 0.25 MG, QH
  23. TRICYCLIC ANTIDEPRESSANTS [Concomitant]
  24. ANTIHISTAMINES [Concomitant]

REACTIONS (16)
  - ASPARTATE AMINOTRANSFERASE INCREASED [None]
  - BLOOD CALCIUM DECREASED [None]
  - BLOOD CREATININE INCREASED [None]
  - BLOOD UREA INCREASED [None]
  - CIRCULATORY COLLAPSE [None]
  - HAEMATOCRIT DECREASED [None]
  - HAEMOGLOBIN DECREASED [None]
  - MEAN CELL HAEMOGLOBIN CONCENTRATION DECREASED [None]
  - MYELODYSPLASTIC SYNDROME [None]
  - NEUTROPHIL COUNT DECREASED [None]
  - PLATELET COUNT DECREASED [None]
  - PROTEIN TOTAL DECREASED [None]
  - RED BLOOD CELL COUNT DECREASED [None]
  - RED CELL DISTRIBUTION WIDTH INCREASED [None]
  - RESUSCITATION [None]
  - WHITE BLOOD CELL COUNT DECREASED [None]
